FAERS Safety Report 9643545 (Version 1)
Quarter: 2013Q4

REPORT INFORMATION
  Report Type: Spontaneous
  Country: GB (occurrence: None)
  Receive Date: 20131022
  Receipt Date: 20131022
  Transmission Date: 20140711
  Serious: Yes (Other)
  Sender: FDA-Public Use
  Company Number: AUR-APL-2013-08727

PATIENT
  Age: 36 Year
  Sex: Male
  Weight: 88.9 kg

DRUGS (2)
  1. CIPROFLOXACIN [Suspect]
     Indication: EPIDIDYMITIS
     Dosage: (500 MG), ORAL
     Route: 048
     Dates: start: 20130920, end: 201309
  2. DOXYCYCLINE (DOXYCYCLINE) [Concomitant]

REACTIONS (3)
  - Tendonitis [None]
  - Tendon disorder [None]
  - Tendon injury [None]
